FAERS Safety Report 8961678 (Version 3)
Quarter: 2013Q1

REPORT INFORMATION
  Report Type: Spontaneous
  Country: US (occurrence: US)
  Receive Date: 20121213
  Receipt Date: 20130122
  Transmission Date: 20140127
  Serious: Yes (Other)
  Sender: FDA-Public Use
  Company Number: US-PFIZER INC-2012309920

PATIENT
  Age: 75 Year
  Sex: Male

DRUGS (16)
  1. FLUCONAZOLE [Suspect]
     Indication: PROPHYLAXIS
     Dosage: 200 MG, DAILY
     Route: 048
  2. AMIODARONE HCL [Interacting]
     Dosage: 200 MG, DAILY
     Route: 048
  3. CIPROFLOXACIN HCL [Interacting]
     Indication: PROSTATITIS
     Dosage: 500 MG, DAILY
     Route: 048
  4. OMEPRAZOLE [Interacting]
     Dosage: 20 MG, DAILY
     Route: 048
  5. BORTEZOMIB [Interacting]
     Indication: PLASMA CELL MYELOMA
     Dosage: 1.3 MG/M2, CYCLIC
     Route: 042
  6. AMLODIPINE [Concomitant]
     Dosage: 10 MG, DAILY
     Route: 048
  7. ASPIRIN [Concomitant]
     Dosage: 81 MG, DAILY
     Route: 048
  8. ATENOLOL [Concomitant]
     Dosage: 25 MG, DAILY
     Route: 048
  9. DEXAMETHASONE [Concomitant]
     Dosage: 40 MG, ON DAYS 1 THROUGH 4 OF CHEMOTHERAPY
     Route: 048
  10. FERROUS SULFATE [Concomitant]
     Dosage: 325 MG, DAILY
     Route: 048
  11. FOLIC ACID [Concomitant]
     Dosage: 1 MG, DAILY
     Route: 048
  12. HYDROCHLOROTHIAZIDE [Concomitant]
     Dosage: 12.5 MG, DAILY
     Route: 048
  13. POTASSIUM [Concomitant]
     Dosage: 20 MEQ, DAILY
     Route: 048
  14. PRAZOSIN [Concomitant]
     Dosage: 5 MG, DAILY
     Route: 048
  15. SIMVASTATIN [Concomitant]
     Dosage: 10 MG, DAILY
     Route: 048
  16. VITAMIN D [Concomitant]
     Dosage: 400, ONCE DAILY
     Route: 042

REACTIONS (6)
  - Autonomic neuropathy [Recovering/Resolving]
  - Neuropathy peripheral [Recovering/Resolving]
  - Orthostatic hypotension [Unknown]
  - Syncope [Unknown]
  - Drug interaction [Unknown]
  - Drug level increased [Unknown]
